FAERS Safety Report 17407971 (Version 5)
Quarter: 2023Q2

REPORT INFORMATION
  Report Type: Spontaneous
  Country: US (occurrence: US)
  Receive Date: 20200212
  Receipt Date: 20230512
  Transmission Date: 20230721
  Serious: No
  Sender: FDA-Public Use
  Company Number: US-PFIZER INC-2020062645

PATIENT
  Age: 48 Year
  Sex: Female

DRUGS (5)
  1. IBRANCE [Suspect]
     Active Substance: PALBOCICLIB
     Indication: Neoplasm malignant
     Dosage: 125 MG, CYCLIC (ONCE DAILY FOR 21 DAYS ON THEN 7 DAYS OFF)
     Dates: start: 2017
  2. IBRANCE [Suspect]
     Active Substance: PALBOCICLIB
     Dosage: 100 MG, CYCLIC (ONCE DAILY FOR 21 DAYS ON THEN 7 DAYS OFF)
     Dates: start: 20210430
  3. LETROZOLE [Concomitant]
     Active Substance: LETROZOLE
     Indication: Neoplasm malignant
     Dosage: 2.5 MG, DAILY (2.5MG TABLET BY MOUTH EVERY DAY WITH NO INTERRUPTION)
     Route: 048
     Dates: start: 2017
  4. LUPRON [Concomitant]
     Active Substance: LEUPROLIDE ACETATE
     Indication: Menopause
     Dosage: 3.7 MG (CALLER THINKS 3.7 MG DOSE INJECTION ADMINISTERED IN HEALTHCARE FACILITY)
     Dates: start: 201704, end: 202010
  5. XGEVA [Concomitant]
     Active Substance: DENOSUMAB
     Indication: Bone disorder
     Dosage: UNK, VIA INJECTION EVERY 3 MONTHS (UNKNOWN DOSE VIA INJECTION EVERY 3 MONTHS)
     Dates: start: 2017

REACTIONS (14)
  - Malaise [Recovered/Resolved]
  - Abdominal discomfort [Unknown]
  - Palpitations [Unknown]
  - Headache [Unknown]
  - Toothache [Recovering/Resolving]
  - Sensitive skin [Recovering/Resolving]
  - Hot flush [Unknown]
  - Arthralgia [Recovering/Resolving]
  - Weight increased [Unknown]
  - Abdominal pain upper [Unknown]
  - Amenorrhoea [Unknown]
  - Fatigue [Unknown]
  - Asthenia [Recovering/Resolving]
  - Nausea [Recovering/Resolving]

NARRATIVE: CASE EVENT DATE: 20170101
